FAERS Safety Report 22054513 (Version 2)
Quarter: 2023Q2

REPORT INFORMATION
  Report Type: Spontaneous
  Country: US (occurrence: US)
  Receive Date: 20230302
  Receipt Date: 20230503
  Transmission Date: 20230721
  Serious: No
  Sender: FDA-Public Use
  Company Number: US-SA-SAC20230301000617

PATIENT
  Age: 25 Year
  Sex: Male

DRUGS (2)
  1. ALPROLIX [Suspect]
     Active Substance: EFTRENONACOG ALFA
     Dosage: 6000 UNITS (+/- 10%)
     Route: 065
  2. ALPROLIX [Suspect]
     Active Substance: EFTRENONACOG ALFA
     Dosage: 6000 UNITS (+/- 10%)
     Route: 065

REACTIONS (4)
  - Mouth injury [Unknown]
  - Tongue haemorrhage [Unknown]
  - Swollen tongue [Unknown]
  - Ecchymosis [Unknown]

NARRATIVE: CASE EVENT DATE: 20230223
